FAERS Safety Report 10278376 (Version 3)
Quarter: 2014Q3

REPORT INFORMATION
  Report Type: Spontaneous
  Country: US (occurrence: US)
  Receive Date: 20140704
  Receipt Date: 20140822
  Transmission Date: 20150326
  Serious: Yes (Hospitalization, Other)
  Sender: FDA-Public Use
  Company Number: US-009507513-1407USA000187

PATIENT
  Age: 51 Year
  Sex: Male
  Weight: 54.8 kg

DRUGS (1)
  1. ISENTRESS [Suspect]
     Active Substance: RALTEGRAVIR POTASSIUM
     Indication: HIV INFECTION
     Dosage: 400 MG, BID
     Route: 048
     Dates: end: 20140628

REACTIONS (5)
  - Mental status changes [Unknown]
  - Extubation [Recovered/Resolved]
  - Sepsis [Unknown]
  - Mechanical ventilation [Unknown]
  - Endotracheal intubation [Recovered/Resolved]

NARRATIVE: CASE EVENT DATE: 201406
